FAERS Safety Report 7297828-X (Version None)
Quarter: 2011Q1

REPORT INFORMATION
  Report Type: 
  Country: None (occurrence: None)
  Receive Date: 20110217
  Receipt Date: 20110203
  Transmission Date: 20110831
  Serious: Yes (Other)
  Sender: FDA-Public Use
  Company Number: IN-RANBAXY-2011RR-41706

PATIENT
  Age: 20 Year
  Sex: Female

DRUGS (4)
  1. RISPERDONE [Concomitant]
  2. METFORMIN HYDROCHLORIDE [Suspect]
     Indication: SCHIZOPHRENIA
     Dosage: 250 MG, UNK
  3. TRIHEXIPHENIDYL [Concomitant]
  4. METFORMIN HYDROCHLORIDE [Suspect]
     Dosage: 500 MG, UNK

REACTIONS (3)
  - THOUGHT BROADCASTING [None]
  - PSYCHOTIC DISORDER [None]
  - CONDITION AGGRAVATED [None]
